FAERS Safety Report 5768288-2 (Version None)
Quarter: 2008Q2

REPORT INFORMATION
  Report Type: 
  Country: None (occurrence: None)
  Receive Date: 20080612
  Receipt Date: 20080603
  Transmission Date: 20081010
  Serious: Yes (Other)
  Sender: FDA-Public Use
  Company Number: US-AMGEN-KDL282751

PATIENT
  Sex: Female
  Weight: 51.8 kg

DRUGS (9)
  1. ARANESP [Suspect]
     Indication: ANAEMIA OF MALIGNANT DISEASE
     Route: 058
     Dates: start: 20080505
  2. NEULASTA [Suspect]
     Indication: CHEMOTHERAPY
     Route: 058
     Dates: end: 20080528
  3. FOSAMAX [Concomitant]
     Route: 048
     Dates: end: 20080528
  4. LIPITOR [Concomitant]
     Route: 048
  5. EMEND [Concomitant]
     Dates: end: 20080528
  6. PROCHLORPERAZINE MALEATE [Concomitant]
     Route: 048
     Dates: end: 20080528
  7. DEXAMETHASONE TAB [Concomitant]
     Dates: end: 20080528
  8. ONDANSETRON [Concomitant]
     Route: 048
     Dates: end: 20080528
  9. PREVACID [Concomitant]
     Route: 048
     Dates: end: 20080528

REACTIONS (2)
  - BONE PAIN [None]
  - GASTROINTESTINAL HAEMORRHAGE [None]
